FAERS Safety Report 8663230 (Version 3)
Quarter: 2012Q4

REPORT INFORMATION
  Report Type: 
  Country: BE (occurrence: BE)
  Receive Date: 20120713
  Receipt Date: 20121024
  Transmission Date: 20130627
  Serious: Yes (Other)
  Sender: FDA-Public Use
  Company Number: PHHY2012BE059391

PATIENT
  Sex: Male

DRUGS (3)
  1. MIACALCIC [Suspect]
     Indication: OSTEOPOROSIS
     Dates: start: 201206
  2. ALENDRONATE [Concomitant]
  3. D-CURE [Concomitant]

REACTIONS (1)
  - Renal impairment [Recovering/Resolving]
